FAERS Safety Report 17281587 (Version 1)
Quarter: 2020Q1

REPORT INFORMATION
  Report Type: Spontaneous
  Country: NL (occurrence: NL)
  Receive Date: 20200117
  Receipt Date: 20200117
  Transmission Date: 20200409
  Serious: Yes (Other)
  Sender: FDA-Public Use
  Company Number: NL-BEH-2020111776

PATIENT

DRUGS (4)
  1. HAEMOCOMPLETTAN P [Suspect]
     Active Substance: FIBRINOGEN HUMAN
     Indication: CONGENITAL DYSFIBRINOGENAEMIA
     Dosage: 5 BOTTLES
     Route: 065
     Dates: start: 2018, end: 2018
  2. HAEMOCOMPLETTAN P [Suspect]
     Active Substance: FIBRINOGEN HUMAN
     Dosage: 2 BOTTLES A DAY
     Route: 065
  3. HAEMOCOMPLETTAN P [Suspect]
     Active Substance: FIBRINOGEN HUMAN
     Dosage: 5 BOTTLES
     Route: 065
     Dates: start: 201912, end: 201912
  4. TRANEXAMIC ACID. [Concomitant]
     Active Substance: TRANEXAMIC ACID

REACTIONS (2)
  - Post procedural haemorrhage [Recovered/Resolved]
  - Pyrexia [Not Recovered/Not Resolved]

NARRATIVE: CASE EVENT DATE: 201912
